FAERS Safety Report 7229335-4 (Version None)
Quarter: 2011Q1

REPORT INFORMATION
  Report Type: 
  Country: None (occurrence: None)
  Receive Date: 20110117
  Receipt Date: 20110106
  Transmission Date: 20110831
  Serious: Yes (Other)
  Sender: FDA-Public Use
  Company Number: US-RB-018408-11

PATIENT
  Age: 68 Year
  Sex: Male

DRUGS (1)
  1. MUCINEX DM [Suspect]
     Dosage: PRODUCT TAKEN FOR ABOUT 2 DAYS, ONE TABLET EVERY 12-14 HOURS
     Route: 048

REACTIONS (1)
  - BLOOD PRESSURE INCREASED [None]
